FAERS Safety Report 24079392 (Version 3)
Quarter: 2024Q3

REPORT INFORMATION
  Report Type: Spontaneous
  Country: MX (occurrence: None)
  Receive Date: 20240711
  Receipt Date: 20240903
  Transmission Date: 20241016
  Serious: Yes (Hospitalization, Other)
  Sender: ASTRAZENECA
  Company Number: 2024A140282

PATIENT
  Age: 691 Month
  Sex: Female
  Weight: 71 kg

DRUGS (4)
  1. IMFINZI [Suspect]
     Active Substance: DURVALUMAB
     Indication: Gallbladder adenocarcinoma
     Route: 041
     Dates: start: 20240501
  2. CARBOPLATIN [Concomitant]
     Active Substance: CARBOPLATIN
     Indication: Product used for unknown indication
     Dates: start: 202403
  3. BEVACIZUMAB/GEMCITABINE/CARBOPLATIN [Concomitant]
     Indication: Product used for unknown indication
     Dates: start: 202403
  4. CAPECITABINE [Concomitant]
     Active Substance: CAPECITABINE
     Indication: Product used for unknown indication
     Dosage: 8 CYCLES
     Dates: end: 20240430

REACTIONS (9)
  - Platelet count decreased [Not Recovered/Not Resolved]
  - Haemoglobin decreased [Not Recovered/Not Resolved]
  - Haemorrhage [Unknown]
  - Immunodeficiency [Unknown]
  - Thrombosis [Not Recovered/Not Resolved]
  - Gingival bleeding [Not Recovered/Not Resolved]
  - Melanocytic naevus [Not Recovered/Not Resolved]
  - Abdominal pain upper [Recovered/Resolved]
  - Inappropriate schedule of product administration [Unknown]

NARRATIVE: CASE EVENT DATE: 20240501
